FAERS Safety Report 11203240 (Version 1)
Quarter: 2015Q2

REPORT INFORMATION
  Report Type: Spontaneous
  Country: US (occurrence: None)
  Receive Date: 20150608
  Receipt Date: 20150608
  Transmission Date: 20150821
  Serious: No
  Sender: FDA-Public Use
  Company Number: HYP201504-000047

PATIENT
  Age: 6 Year
  Sex: Female
  Weight: 20 kg

DRUGS (3)
  1. CITRULLINE [Concomitant]
     Active Substance: CITRULLINE
  2. RAVICTI [Suspect]
     Active Substance: GLYCEROL PHENYLBUTYRATE
     Indication: ORNITHINE TRANSCARBAMOYLASE DEFICIENCY
     Dates: start: 20150323
  3. CYCLINEX 2 (ASCORBIC ACID, BIOTIN, CALCIUM CHLORIDE, CHOLINE, CHROMIUM, COPPER, FOLIC ACID, INOSITOL, IODINE, IRON, LEVOCARNITINE, LINOLEIC ACID, MAGNESIUM, MANGANESE, MOLYBDENUM, NICOTINIC ACID, PANTOTHENIC ACID, PHOSPHORUS, POTASSIM, PYRIDOXINE HYDROCHLORIDE, RETINOL, RIBOFLAVIN, SELENIUM, SODIUM, THIAMINE, VITAMIN B12, VITAMIN D, VITAMIN E, VITAMIN K, ZINC) [Concomitant]

REACTIONS (5)
  - Weight decreased [None]
  - Feeling abnormal [None]
  - Decreased appetite [None]
  - Diarrhoea [None]
  - Urine output increased [None]

NARRATIVE: CASE EVENT DATE: 201503
